FAERS Safety Report 16740996 (Version 1)
Quarter: 2019Q3

REPORT INFORMATION
  Report Type: Spontaneous
  Country: US (occurrence: US)
  Receive Date: 20190826
  Receipt Date: 20190826
  Transmission Date: 20191005
  Serious: Yes (Other)
  Sender: FDA-Public Use
  Company Number: US-COLGATE PALMOLIVE COMPANY-20190802143

PATIENT
  Sex: Female

DRUGS (1)
  1. NATURALLY DRY NATURAL [Suspect]
     Active Substance: ALUMINUM CHLOROHYDRATE
     Dosage: UNKNOWN DOSE
     Dates: start: 2019

REACTIONS (1)
  - Breast cancer [Unknown]

NARRATIVE: CASE EVENT DATE: 2019
